FAERS Safety Report 21672194 (Version 1)
Quarter: 2022Q4

REPORT INFORMATION
  Report Type: Spontaneous
  Country: CA (occurrence: CA)
  Receive Date: 20221202
  Receipt Date: 20221202
  Transmission Date: 20230113
  Serious: Yes (Other)
  Sender: FDA-Public Use
  Company Number: CA-PFIZER INC-202201337261

PATIENT
  Age: 43 Year
  Sex: Female

DRUGS (2)
  1. ABRILADA [Suspect]
     Active Substance: ADALIMUMAB-AFZB
     Indication: Hidradenitis
     Dosage: 40 MG, WEEKLY, INDUCTION 160MG WEEK , 80 MG WEEK 2 THEN 40MG EVERY WEEK STARTING WEEK 4
     Dates: start: 20221107
  2. ABRILADA [Suspect]
     Active Substance: ADALIMUMAB-AFZB
     Dosage: 40 MG, WEEKLY, INDUCTION 160MG WEEK , 80 MG WEEK 2 THEN 40MG EVERY WEEK STARTING WEEK 4.
     Dates: start: 20221124

REACTIONS (1)
  - Drain site complication [Not Recovered/Not Resolved]

NARRATIVE: CASE EVENT DATE: 20221101
